FAERS Safety Report 14410241 (Version 1)
Quarter: 2018Q1

REPORT INFORMATION
  Report Type: Spontaneous
  Country: US (occurrence: US)
  Receive Date: 20180116
  Receipt Date: 20180116
  Transmission Date: 20180509
  Serious: No
  Sender: FDA-Public Use
  Company Number: None

PATIENT
  Age: 58 Year
  Sex: Female

DRUGS (1)
  1. IBRANCE [Suspect]
     Active Substance: PALBOCICLIB
     Indication: BREAST CANCER
     Dosage: 100MG DAILY X 21 DAYS, EVERY 28 DAY CYCLE BY MOUTH
     Route: 048
     Dates: start: 20160709

REACTIONS (1)
  - Fatigue [None]

NARRATIVE: CASE EVENT DATE: 20180114
